FAERS Safety Report 5233934-9 (Version None)
Quarter: 2007Q1

REPORT INFORMATION
  Report Type: 
  Country: None (occurrence: None)
  Receive Date: 20061204
  Receipt Date: 20060803
  Transmission Date: 20070707
  Serious: No
  Sender: FDA-Public Use
  Company Number: 2006-BP-07827BP

PATIENT
  Age: 70 Year
  Sex: Male

DRUGS (12)
  1. SPIRIVA [Suspect]
     Indication: CHRONIC OBSTRUCTIVE PULMONARY DISEASE
     Dosage: 18 MCG (18 MCG,1 IN 1 D),IH
     Route: 055
     Dates: start: 20060501
  2. SPIRIVA [Suspect]
     Indication: DYSPNOEA
     Dosage: 18 MCG (18 MCG,1 IN 1 D),IH
     Route: 055
     Dates: start: 20060501
  3. ALBUTEROL [Concomitant]
  4. IPRATROPIUM BROMIDE [Concomitant]
  5. TOPROL-XL [Concomitant]
  6. HYZAAR [Concomitant]
  7. GLUCOPHAGE [Concomitant]
  8. ALLERGY SHOTS (ALL OTHER THERAPEUTIC PRODUCTS) [Concomitant]
  9. ALLEGRA [Concomitant]
  10. HUMALOG [Concomitant]
  11. LIPITOR [Concomitant]
  12. ASMANEX TWISTHALER [Concomitant]

REACTIONS (3)
  - HAIR COLOUR CHANGES [None]
  - HYPERHIDROSIS [None]
  - TOOTH DISCOLOURATION [None]
